FAERS Safety Report 11237203 (Version 3)
Quarter: 2015Q4

REPORT INFORMATION
  Report Type: Report from Study
  Country: PR (occurrence: PR)
  Receive Date: 20150703
  Receipt Date: 20151104
  Transmission Date: 20160304
  Serious: Yes (Other)
  Sender: FDA-Public Use
  Company Number: PR-ABBVIE-15K-131-1407852-00

PATIENT
  Age: 58 Year
  Sex: Female
  Weight: 64.01 kg

DRUGS (2)
  1. HUMIRA [Suspect]
     Active Substance: ADALIMUMAB
     Indication: CROHN^S DISEASE
  2. HUMIRA [Suspect]
     Active Substance: ADALIMUMAB
     Indication: CROHN^S DISEASE
     Route: 058
     Dates: start: 2012, end: 201504

REACTIONS (3)
  - Large intestinal stenosis [Recovering/Resolving]
  - Colon cancer [Unknown]
  - Impaired healing [Recovering/Resolving]

NARRATIVE: CASE EVENT DATE: 20150306
